FAERS Safety Report 9469907 (Version 1)
Quarter: 2013Q3

REPORT INFORMATION
  Report Type: Spontaneous
  Country: US (occurrence: None)
  Receive Date: 20130820
  Receipt Date: 20130820
  Transmission Date: 20140515
  Serious: No
  Sender: FDA-Public Use
  Company Number: None

PATIENT
  Sex: Female

DRUGS (1)
  1. AFINITOR [Suspect]
     Route: 048
     Dates: start: 20130503

REACTIONS (6)
  - Stomatitis [None]
  - Fatigue [None]
  - Rash [None]
  - Acne [None]
  - Ageusia [None]
  - Neuropathy peripheral [None]
